FAERS Safety Report 20836390 (Version 1)
Quarter: 2022Q2

REPORT INFORMATION
  Report Type: 
  Country: None (occurrence: None)
  Receive Date: 20220517
  Receipt Date: 20220517
  Transmission Date: 20220720
  Serious: No
  Sender: FDA-Public Use
  Company Number: CA-002147023-PHHY2018CA035694

PATIENT
  Age: 23 Year

DRUGS (35)
  1. XOLAIR [Suspect]
     Active Substance: OMALIZUMAB
     Dates: start: 20180627
  2. XOLAIR [Suspect]
     Active Substance: OMALIZUMAB
     Dates: start: 20180724
  3. XOLAIR [Suspect]
     Active Substance: OMALIZUMAB
     Dates: start: 20180821
  4. XOLAIR [Suspect]
     Active Substance: OMALIZUMAB
     Dates: start: 20180918
  5. XOLAIR [Suspect]
     Active Substance: OMALIZUMAB
     Dates: start: 20181016
  6. XOLAIR [Suspect]
     Active Substance: OMALIZUMAB
     Dates: start: 20181114
  7. XOLAIR [Suspect]
     Active Substance: OMALIZUMAB
     Dates: start: 20181211
  8. XOLAIR [Suspect]
     Active Substance: OMALIZUMAB
     Dates: start: 20190108
  9. XOLAIR [Suspect]
     Active Substance: OMALIZUMAB
     Dates: start: 20190205
  10. XOLAIR [Suspect]
     Active Substance: OMALIZUMAB
     Dates: start: 20190306
  11. XOLAIR [Suspect]
     Active Substance: OMALIZUMAB
     Dates: start: 20190402
  12. XOLAIR [Suspect]
     Active Substance: OMALIZUMAB
     Dates: start: 20190528
  13. XOLAIR [Suspect]
     Active Substance: OMALIZUMAB
     Dates: start: 20190625
  14. XOLAIR [Suspect]
     Active Substance: OMALIZUMAB
     Dates: start: 20190917
  15. XOLAIR [Suspect]
     Active Substance: OMALIZUMAB
     Dates: start: 201910
  16. XOLAIR [Suspect]
     Active Substance: OMALIZUMAB
     Dates: start: 20191210
  17. XOLAIR [Suspect]
     Active Substance: OMALIZUMAB
     Dates: start: 20191226
  18. XOLAIR [Suspect]
     Active Substance: OMALIZUMAB
     Dates: start: 20200204
  19. XOLAIR [Suspect]
     Active Substance: OMALIZUMAB
     Dates: start: 20200428
  20. XOLAIR [Suspect]
     Active Substance: OMALIZUMAB
  21. XOLAIR [Suspect]
     Active Substance: OMALIZUMAB
     Dates: start: 20180628
  22. XOLAIR [Suspect]
     Active Substance: OMALIZUMAB
  23. XOLAIR [Suspect]
     Active Substance: OMALIZUMAB
  24. XOLAIR [Suspect]
     Active Substance: OMALIZUMAB
     Dates: start: 20210604
  25. XOLAIR [Suspect]
     Active Substance: OMALIZUMAB
  26. XOLAIR [Suspect]
     Active Substance: OMALIZUMAB
  27. CHLORHEXIDINE [Suspect]
     Active Substance: CHLORHEXIDINE
  28. PENICILLIN [Suspect]
     Active Substance: PENICILLIN
  29. ZOFRAN [Concomitant]
     Active Substance: ONDANSETRON HYDROCHLORIDE
     Dosage: UNK
  30. GRAVOL [Concomitant]
     Active Substance: DIMENHYDRINATE
     Dosage: AS REQUIRED
     Dates: start: 201712
  31. EPINEPHRINE [Concomitant]
     Active Substance: EPINEPHRINE
     Dosage: UNK
  32. VENTOLIN [Concomitant]
     Active Substance: ALBUTEROL SULFATE
     Dosage: UNK
  33. PREDNISONE [Concomitant]
     Active Substance: PREDNISONE
     Dosage: UNK
  34. BENADRYL [Concomitant]
     Active Substance: DIPHENHYDRAMINE HYDROCHLORIDE
     Dosage: 50 MG (OVER 2 MIN AS PER ORDER FLUSHED)
  35. BENADRYL [Concomitant]
     Active Substance: DIPHENHYDRAMINE HYDROCHLORIDE
     Dosage: 50 MG (NOT EXCEEDING 25MG/ML)

REACTIONS (31)
  - Abdominal pain [None]
  - Drug hypersensitivity [None]
  - Pruritus [None]
  - Skin burning sensation [None]
  - Dyspnoea [None]
  - Mouth swelling [None]
  - Nausea [None]
  - Heart rate increased [None]
  - Urticaria [None]
  - Rash [None]
  - Anaphylactic reaction [None]
  - Pharyngeal swelling [None]
  - Blood pressure increased [None]
  - Hypersensitivity [None]
  - Ear pruritus [None]
  - Flushing [None]
  - Blood pressure abnormal [None]
  - Lip swelling [None]
  - Erythema [None]
  - Feeling hot [None]
  - Vascular access complication [None]
  - Eye pruritus [None]
  - Anxiety [None]
  - Pain [None]
  - Influenza like illness [None]
  - Headache [None]
  - Nasopharyngitis [None]
  - Rhinorrhoea [None]
  - Oropharyngeal pain [None]
  - Product administered at inappropriate site [None]
  - Wrong technique in product usage process [None]

NARRATIVE: CASE EVENT DATE: 20180627
